FAERS Safety Report 15570671 (Version 3)
Quarter: 2019Q3

REPORT INFORMATION
  Report Type: Report from Study
  Country: CA (occurrence: CA)
  Receive Date: 20181031
  Receipt Date: 20190822
  Transmission Date: 20191004
  Serious: Yes (Hospitalization)
  Sender: FDA-Public Use
  Company Number: PHHY2018CA054261

PATIENT
  Age: 51 Year
  Sex: Female

DRUGS (16)
  1. XOLAIR [Suspect]
     Active Substance: OMALIZUMAB
     Dosage: 300 MG, BIW
     Route: 058
     Dates: start: 20180601
  2. SYMBICORT [Concomitant]
     Active Substance: BUDESONIDE\FORMOTEROL FUMARATE DIHYDRATE
     Indication: PRODUCT USED FOR UNKNOWN INDICATION
     Dosage: UNK
     Route: 055
     Dates: start: 20171005
  3. XOLAIR [Suspect]
     Active Substance: OMALIZUMAB
     Indication: ASTHMA
     Dosage: 300 MG, BIW
     Route: 058
     Dates: start: 20180308
  4. XOLAIR [Suspect]
     Active Substance: OMALIZUMAB
     Dosage: 300 MG, BIW
     Route: 058
     Dates: start: 20180929
  5. SPIRIVA [Concomitant]
     Active Substance: TIOTROPIUM BROMIDE MONOHYDRATE
     Indication: ASTHMA
     Dosage: 1 DF, BID
     Route: 055
     Dates: start: 20160101
  6. SYNTHROID [Concomitant]
     Active Substance: LEVOTHYROXINE SODIUM
     Indication: THYROID DISORDER
     Dosage: UNK
     Route: 065
     Dates: start: 2013
  7. CLARITHROMYCIN. [Concomitant]
     Active Substance: CLARITHROMYCIN
     Indication: PRODUCT USED FOR UNKNOWN INDICATION
     Dosage: UNK UNK, QD
     Route: 048
     Dates: start: 20171005
  8. XOLAIR [Suspect]
     Active Substance: OMALIZUMAB
     Dosage: 300 MG, BIW
     Route: 058
     Dates: start: 20190808
  9. PREDNISONE. [Concomitant]
     Active Substance: PREDNISONE
     Indication: ASTHMA
     Dosage: UNK
     Route: 065
     Dates: start: 2013
  10. XOLAIR [Suspect]
     Active Substance: OMALIZUMAB
     Dosage: 300 MG, BIW
     Route: 058
     Dates: start: 20190815
  11. VENTOLIN [Concomitant]
     Active Substance: ALBUTEROL SULFATE
     Dosage: UNK
     Route: 065
  12. VENTOLIN [Concomitant]
     Active Substance: ALBUTEROL SULFATE
     Indication: ASTHMA
     Dosage: 2 DF, PRN
     Route: 055
     Dates: start: 2011
  13. XOLAIR [Suspect]
     Active Substance: OMALIZUMAB
     Dosage: 300 MG, BIW
     Route: 058
     Dates: start: 20180829
  14. ATROVENT [Concomitant]
     Active Substance: IPRATROPIUM BROMIDE
     Indication: PRODUCT USED FOR UNKNOWN INDICATION
     Dosage: 1 DF, PRN
     Route: 065
     Dates: start: 2011
  15. AZITHROMYCIN ANHYDROUS. [Concomitant]
     Active Substance: AZITHROMYCIN ANHYDROUS
     Indication: PRODUCT USED FOR UNKNOWN INDICATION
     Dosage: UNK
     Route: 048
     Dates: start: 2013
  16. ADVAIR HFA [Concomitant]
     Active Substance: FLUTICASONE PROPIONATE\SALMETEROL XINAFOATE
     Indication: ASTHMA
     Dosage: 1 DF, BID
     Route: 055
     Dates: start: 2011

REACTIONS (13)
  - Musculoskeletal pain [Unknown]
  - Neck pain [Unknown]
  - Gait disturbance [Unknown]
  - Seasonal allergy [Unknown]
  - Malaise [Unknown]
  - Dyspnoea [Not Recovered/Not Resolved]
  - Nasopharyngitis [Unknown]
  - Headache [Unknown]
  - Asthma [Unknown]
  - Pneumonia [Recovering/Resolving]
  - Pyrexia [Unknown]
  - Influenza like illness [Unknown]
  - Inappropriate schedule of product administration [Unknown]

NARRATIVE: CASE EVENT DATE: 201803
